FAERS Safety Report 10354924 (Version 2)
Quarter: 2014Q4

REPORT INFORMATION
  Report Type: Report from Study
  Country: CN (occurrence: CN)
  Receive Date: 20140731
  Receipt Date: 20141013
  Transmission Date: 20150528
  Serious: Yes (Death)
  Sender: FDA-Public Use
  Company Number: CN-SA-2014SA101603

PATIENT
  Age: 57 Year
  Sex: Male

DRUGS (6)
  1. OXALIPLATIN. [Suspect]
     Active Substance: OXALIPLATIN
     Indication: METASTATIC GASTRIC CANCER
     Dosage: ON DAY 1; 2-H INFUSION
     Route: 042
     Dates: end: 20100303
  2. EPIRUBICIN [Suspect]
     Active Substance: EPIRUBICIN
     Indication: METASTATIC GASTRIC CANCER
     Dosage: ON DAY 1
     Route: 042
     Dates: start: 20091030
  3. EPIRUBICIN [Suspect]
     Active Substance: EPIRUBICIN
     Indication: METASTATIC GASTRIC CANCER
     Route: 042
     Dates: end: 20100303
  4. OXALIPLATIN. [Suspect]
     Active Substance: OXALIPLATIN
     Indication: METASTATIC GASTRIC CANCER
     Dosage: ON DAY 1; 2-H INFUSION
     Route: 042
     Dates: start: 20091030
  5. FLUOROURACIL. [Suspect]
     Active Substance: FLUOROURACIL
     Indication: METASTATIC GASTRIC CANCER
     Dosage: 120-H CONTINUOUS INFUSION FOR 5 DAYS, EVERY 3 WEEKS
     Route: 042
     Dates: end: 20100303
  6. FLUOROURACIL. [Suspect]
     Active Substance: FLUOROURACIL
     Indication: METASTATIC GASTRIC CANCER
     Dosage: 120-H CONTINUOUS INFUSION FOR 5 DAYS, EVERY 3 WEEKS
     Route: 042
     Dates: start: 20091030

REACTIONS (1)
  - Death [Fatal]

NARRATIVE: CASE EVENT DATE: 20100320
